FAERS Safety Report 10156556 (Version 2)
Quarter: 2014Q2

REPORT INFORMATION
  Report Type: Report from Study
  Country: CA (occurrence: CA)
  Receive Date: 20140507
  Receipt Date: 20140507
  Transmission Date: 20141212
  Serious: Yes (Hospitalization)
  Sender: FDA-Public Use
  Company Number: CA-ROCHE-1138716

PATIENT
  Age: 58 Year
  Sex: Female
  Weight: 100 kg

DRUGS (11)
  1. OBINUTUZUMAB [Suspect]
     Indication: NON-HODGKIN^S LYMPHOMA
     Dosage: LAST DOSE ON 12/SEP/2012
     Route: 042
     Dates: start: 20120718
  2. BENDAMUSTINE [Suspect]
     Indication: NON-HODGKIN^S LYMPHOMA
     Dosage: LAST DOSE ON 13/SEP/2012
     Route: 042
     Dates: start: 20120718
  3. AMLODIPINE [Concomitant]
     Indication: HYPERTENSION
     Route: 065
     Dates: start: 20010401, end: 20130404
  4. PANTOPRAZOLE [Concomitant]
     Indication: GASTROOESOPHAGEAL REFLUX DISEASE
     Route: 065
     Dates: start: 20110420
  5. CITALOPRAM [Concomitant]
     Indication: DEPRESSION
     Route: 065
     Dates: start: 20090609
  6. ZOPICLONE [Concomitant]
     Indication: INSOMNIA
     Route: 065
     Dates: start: 20100820
  7. GRAVOL [Concomitant]
     Indication: NAUSEA
     Route: 065
     Dates: start: 201201
  8. IBUPROFEN [Concomitant]
     Indication: ARTHRALGIA
     Route: 065
     Dates: start: 201206
  9. MORPHINE [Concomitant]
     Indication: PAIN
     Route: 065
     Dates: start: 20120625
  10. MORPHINE [Concomitant]
     Indication: MIGRAINE
     Route: 065
     Dates: start: 20120914, end: 20120915
  11. CEPHALEX [Concomitant]
     Indication: PHLEBITIS
     Route: 065
     Dates: start: 20120904, end: 20120906

REACTIONS (2)
  - Vomiting [Recovered/Resolved]
  - Nausea [Recovered/Resolved]
